FAERS Safety Report 8971116 (Version 1)
Quarter: 2012Q4

REPORT INFORMATION
  Report Type: 
  Country: DE (occurrence: DE)
  Receive Date: 20121217
  Receipt Date: 20121217
  Transmission Date: 20130627
  Serious: Yes (Hospitalization)
  Sender: FDA-Public Use
  Company Number: DE-PFIZER INC-2012315699

PATIENT
  Age: 64 Year
  Sex: Female
  Weight: 69 kg

DRUGS (5)
  1. GENOTROPIN [Suspect]
     Dosage: 0.6 mg, 1x/day,7 injections/week.
     Route: 058
     Dates: start: 20060628
  2. EUTHYROX [Concomitant]
     Indication: UNSPECIFIED HYPOTHYROIDISM
     Dosage: UNK
     Dates: start: 19940715
  3. PRAVIDEL [Concomitant]
     Indication: ENDOCRINE DISORDER
     Dosage: UNK
     Dates: start: 19941015
  4. ASS [Concomitant]
     Indication: ESSENTIAL HYPERTENSION
     Dosage: UNK
     Dates: start: 20040701
  5. HYDROCORTISONE [Concomitant]
     Indication: ACTH DECREASED
     Dosage: UNK
     Dates: start: 19940715

REACTIONS (1)
  - Neck pain [Unknown]
